FAERS Safety Report 16388516 (Version 1)
Quarter: 2019Q2

REPORT INFORMATION
  Report Type: Spontaneous
  Country: CN (occurrence: CN)
  Receive Date: 20190604
  Receipt Date: 20190604
  Transmission Date: 20190711
  Serious: Yes (Other)
  Sender: FDA-Public Use
  Company Number: CN-EPIC PHARMA LLC-2019EPC00144

PATIENT
  Age: 48 Year
  Sex: Female

DRUGS (6)
  1. MORPHINE SULFATE. [Suspect]
     Active Substance: MORPHINE SULFATE
     Dosage: 1.5 MG/ML INFUSION [16.2 MG PER DAY]UNK
     Route: 037
  2. MORPHINE SULFATE. [Suspect]
     Active Substance: MORPHINE SULFATE
     Dosage: 3 MG/ML INFUSION
     Dates: start: 201506
  3. MORPHINE SULFATE. [Suspect]
     Active Substance: MORPHINE SULFATE
     Indication: CANCER PAIN
     Dosage: 1 MG/ML INFUSION [1.5 MG PER DAY WITH GRADUAL TITRATION]
     Route: 037
     Dates: start: 20150324
  4. MORPHINE SULFATE. [Suspect]
     Active Substance: MORPHINE SULFATE
     Dosage: NO MORE THAN 15 MG
     Route: 037
  5. ROPIVACAINE. [Suspect]
     Active Substance: ROPIVACAINE HYDROCHLORIDE
     Indication: CANCER PAIN
     Dosage: 1.25 MG/ML IN NS; 0.5-ML BOLUS WITH 2-HOUR LOCKOUT
     Route: 037
     Dates: start: 20150324
  6. MORPHINE SULFATE. [Suspect]
     Active Substance: MORPHINE SULFATE
     Dosage: 1.5 MG/ML INFUSION [16.2 MG PER DAY]
     Route: 037

REACTIONS (1)
  - Myoclonus [Recovered/Resolved]
